FAERS Safety Report 7514086-9 (Version None)
Quarter: 2011Q2

REPORT INFORMATION
  Report Type: 
  Country: None (occurrence: None)
  Receive Date: 20110531
  Receipt Date: 20100325
  Transmission Date: 20111010
  Serious: No
  Sender: FDA-Public Use
  Company Number: US-BAYER-201017504NA

PATIENT
  Sex: Female

DRUGS (2)
  1. FLONASE [Concomitant]
  2. AVELOX [Suspect]
     Indication: SINUSITIS
     Dosage: 400 MG, QD
     Dates: start: 20100323, end: 20100324

REACTIONS (5)
  - ANXIETY [None]
  - INSOMNIA [None]
  - PARAESTHESIA [None]
  - RESTLESSNESS [None]
  - VISUAL IMPAIRMENT [None]
